FAERS Safety Report 9912883 (Version 2)
Quarter: 2014Q2

REPORT INFORMATION
  Report Type: Spontaneous
  Country: JP (occurrence: JP)
  Receive Date: 20140220
  Receipt Date: 20140402
  Transmission Date: 20141212
  Serious: Yes (Hospitalization)
  Sender: FDA-Public Use
  Company Number: JP-EISAI INC-E7389-04756-SPO-JP

PATIENT
  Age: 84 Year
  Sex: Female

DRUGS (4)
  1. HALAVEN [Suspect]
     Indication: BREAST CANCER METASTATIC
     Dosage: 1.4 MG/M2
     Route: 041
     Dates: start: 20131217, end: 20140129
  2. FARESTON [Concomitant]
     Indication: BREAST CANCER METASTATIC
     Route: 048
  3. BAYASPIRIN [Concomitant]
     Route: 048
  4. HYSRON [Concomitant]
     Dates: start: 20131217

REACTIONS (1)
  - Cardiac failure [Recovering/Resolving]
